FAERS Safety Report 7251097-5 (Version None)
Quarter: 2011Q1

REPORT INFORMATION
  Report Type: 
  Country: None (occurrence: None)
  Receive Date: 20110128
  Receipt Date: 20101217
  Transmission Date: 20110831
  Serious: Yes (Hospitalization)
  Sender: FDA-Public Use
  Company Number: US-BAYER-201026698NA

PATIENT
  Sex: Female
  Weight: 52.154 kg

DRUGS (5)
  1. NABUMETONE [Concomitant]
     Dosage: UNK
     Dates: start: 20040330
  2. HYDROCODONE [Concomitant]
  3. UNCODEABLE ^UNCLASSIFIABLE^ [Concomitant]
  4. YAZ [Suspect]
     Indication: PRODUCT USED FOR UNKNOWN INDICATION
     Route: 048
  5. YASMIN [Suspect]
     Indication: ORAL CONTRACEPTION
     Dosage: UNK
     Dates: start: 20031001, end: 20040501

REACTIONS (7)
  - DYSPNOEA [None]
  - DYSPNOEA EXERTIONAL [None]
  - CHEST PAIN [None]
  - COUGH [None]
  - CONSTIPATION [None]
  - PULMONARY EMBOLISM [None]
  - BACK PAIN [None]
